FAERS Safety Report 13295799 (Version 1)
Quarter: 2017Q1

REPORT INFORMATION
  Report Type: Spontaneous
  Country: US (occurrence: US)
  Receive Date: 20170303
  Receipt Date: 20170303
  Transmission Date: 20170428
  Serious: Yes (Other)
  Sender: FDA-Public Use
  Company Number: US-DSJP-DSU-2017-106435

PATIENT

DRUGS (2)
  1. SOTALOL. [Concomitant]
     Active Substance: SOTALOL
     Indication: HEART RATE INCREASED
     Dosage: UNK
  2. SAVAYSA [Suspect]
     Active Substance: EDOXABAN TOSYLATE
     Indication: ATRIAL FLUTTER
     Dosage: 60 MG, QD
     Route: 065
     Dates: start: 201608

REACTIONS (2)
  - Oesophageal carcinoma [Not Recovered/Not Resolved]
  - Off label use [Unknown]
